FAERS Safety Report 4985088-1 (Version None)
Quarter: 2006Q2

REPORT INFORMATION
  Report Type: 
  Country: None (occurrence: None)
  Receive Date: 20060419
  Receipt Date: 20060413
  Transmission Date: 20061013
  Serious: Yes (Life-Threatening, Other)
  Sender: FDA-Public Use
  Company Number: HQWYE823013APR06

PATIENT
  Age: 69 Year
  Sex: Male

DRUGS (2)
  1. CORDARONE [Suspect]
     Dosage: ORAL
     Route: 048
     Dates: end: 20050801
  2. VFEND [Suspect]
     Dosage: 400 MG 1X PER 1 DAY ORAL
     Route: 048
     Dates: end: 20050801

REACTIONS (4)
  - DIARRHOEA [None]
  - DRUG INTERACTION [None]
  - HYPOKALAEMIA [None]
  - TORSADE DE POINTES [None]
